FAERS Safety Report 7418574-5 (Version None)
Quarter: 2011Q2

REPORT INFORMATION
  Report Type: 
  Country: None (occurrence: None)
  Receive Date: 20110415
  Receipt Date: 20110412
  Transmission Date: 20111010
  Serious: Yes (Death, Other)
  Sender: FDA-Public Use
  Company Number: PHHY2010JP69634

PATIENT
  Sex: Male
  Weight: 64 kg

DRUGS (8)
  1. THYRADIN S [Concomitant]
     Dosage: 100 MG
     Route: 048
  2. TAKEPRON [Concomitant]
     Dosage: 30 MG
     Route: 048
  3. AFINITOR [Suspect]
     Indication: METASTATIC RENAL CELL CARCINOMA
     Dosage: 10 MG DAILY
     Route: 048
     Dates: start: 20100906, end: 20110124
  4. LOXONIN [Concomitant]
     Dosage: 100 MG, UNK
     Route: 062
     Dates: start: 20101004
  5. SUNITINIB MALATE [Concomitant]
     Indication: METASTATIC RENAL CELL CARCINOMA
     Dosage: UNK
     Route: 048
     Dates: start: 20090126, end: 20100802
  6. DEPAKENE [Concomitant]
     Indication: METASTATIC RENAL CELL CARCINOMA
     Dosage: 600 MG
     Route: 048
  7. PREDONINE [Concomitant]
     Indication: METASTATIC RENAL CELL CARCINOMA
     Dosage: 5 MG
     Route: 048
  8. MUCODYNE [Concomitant]
     Indication: METASTATIC RENAL CELL CARCINOMA
     Dosage: 250 MG, UNK
     Route: 048
     Dates: start: 20110107, end: 20110124

REACTIONS (4)
  - ANAEMIA [None]
  - NEOPLASM MALIGNANT [None]
  - C-REACTIVE PROTEIN INCREASED [None]
  - HAEMOGLOBIN DECREASED [None]
